FAERS Safety Report 4333111-X (Version None)
Quarter: 2004Q2

REPORT INFORMATION
  Report Type: 
  Country: None (occurrence: None)
  Receive Date: 20040405
  Receipt Date: 20040405
  Transmission Date: 20050107
  Serious: Yes (Disabling)
  Sender: FDA-Public Use
  Company Number: None

PATIENT
  Age: 48 Year
  Sex: Female
  Weight: 63.05 kg

DRUGS (1)
  1. LEVAQUIN [Suspect]
     Indication: CELLULITIS
     Dosage: 500 MG ONCE PER D ORAL
     Route: 048
     Dates: start: 20040301, end: 20040302

REACTIONS (18)
  - ABASIA [None]
  - ARRHYTHMIA [None]
  - BURNING SENSATION [None]
  - CARDIOVASCULAR DISORDER [None]
  - DIZZINESS [None]
  - DYSARTHRIA [None]
  - DYSSTASIA [None]
  - FATIGUE [None]
  - HEADACHE [None]
  - HYPERACUSIS [None]
  - INSOMNIA [None]
  - MUSCLE TWITCHING [None]
  - MYALGIA [None]
  - NAIL DISCOLOURATION [None]
  - PAIN [None]
  - TENDON DISORDER [None]
  - TREMOR [None]
  - TRISMUS [None]
